FAERS Safety Report 19688856 (Version 1)
Quarter: 2021Q3

REPORT INFORMATION
  Report Type: Spontaneous
  Country: US (occurrence: US)
  Receive Date: 20210811
  Receipt Date: 20210811
  Transmission Date: 20211014
  Serious: No
  Sender: FDA-Public Use
  Company Number: US-SA-2021SA262025

PATIENT
  Age: 53 Year
  Sex: Female

DRUGS (3)
  1. DUREZOL [Concomitant]
     Active Substance: DIFLUPREDNATE
     Indication: VISION BLURRED
  2. DUPIXENT [Suspect]
     Active Substance: DUPILUMAB
     Indication: DERMATITIS ATOPIC
     Dosage: 300 MG, QOW
     Route: 058
     Dates: start: 202104
  3. DUREZOL [Concomitant]
     Active Substance: DIFLUPREDNATE
     Indication: CONJUNCTIVITIS
     Dosage: UNK

REACTIONS (2)
  - Vision blurred [Unknown]
  - Conjunctivitis [Unknown]

NARRATIVE: CASE EVENT DATE: 2021
